FAERS Safety Report 4489509-2 (Version None)
Quarter: 2004Q4

REPORT INFORMATION
  Report Type: 
  Country: None (occurrence: None)
  Receive Date: 20041028
  Receipt Date: 20041015
  Transmission Date: 20050328
  Serious: Yes (Hospitalization)
  Sender: FDA-Public Use
  Company Number: HQWYE793415OCT04

PATIENT
  Age: 25 Year
  Sex: Female

DRUGS (1)
  1. MINOCYCLINE HCL [Suspect]
     Indication: PNEUMONIA MYCOPLASMAL
     Dates: start: 20040101, end: 20040201

REACTIONS (7)
  - DIPLOPIA [None]
  - EYE PAIN [None]
  - GLARE [None]
  - HEADACHE [None]
  - INTRACRANIAL PRESSURE INCREASED [None]
  - PAPILLOEDEMA [None]
  - VITH NERVE PARALYSIS [None]
